FAERS Safety Report 17695939 (Version 2)
Quarter: 2022Q4

REPORT INFORMATION
  Report Type: Spontaneous
  Country: US (occurrence: US)
  Receive Date: 20200422
  Receipt Date: 20221008
  Transmission Date: 20230112
  Serious: Yes (Death, Other)
  Sender: FDA-Public Use
  Company Number: US-NAPPMUNDI-USA-2002-0002069

PATIENT
  Age: 29 Year
  Sex: Female
  Weight: 104.31 kg

DRUGS (4)
  1. OXYCONTIN [Suspect]
     Active Substance: OXYCODONE HYDROCHLORIDE
     Indication: Pain
     Dosage: 40 MG, Q12H
     Route: 048
     Dates: start: 200201
  2. OXYCONTIN [Suspect]
     Active Substance: OXYCODONE HYDROCHLORIDE
     Indication: Back injury
  3. OXYCONTIN [Suspect]
     Active Substance: OXYCODONE HYDROCHLORIDE
     Indication: Back pain
  4. QUETIAPINE [Suspect]
     Active Substance: QUETIAPINE
     Indication: Product used for unknown indication
     Dosage: UNK MG, UNK
     Route: 048

REACTIONS (4)
  - Accidental overdose [Fatal]
  - Drug dependence [Unknown]
  - Respiratory arrest [Fatal]
  - Aggression [Unknown]

NARRATIVE: CASE EVENT DATE: 20020429
